FAERS Safety Report 12217975 (Version 1)
Quarter: 2016Q1

REPORT INFORMATION
  Report Type: Spontaneous
  Country: US (occurrence: None)
  Receive Date: 20160328
  Receipt Date: 20160328
  Transmission Date: 20160526
  Serious: No
  Sender: FDA-Public Use
  Company Number: None

PATIENT
  Age: 71 Year
  Sex: Female
  Weight: 79.38 kg

DRUGS (7)
  1. LISINOPRIL. [Concomitant]
     Active Substance: LISINOPRIL
  2. ADVIL [Concomitant]
     Active Substance: IBUPROFEN
  3. PROBIOTIC 10 [Concomitant]
  4. ASPIRIN. [Concomitant]
     Active Substance: ASPIRIN
  5. PRILOSEC [Suspect]
     Active Substance: OMEPRAZOLE MAGNESIUM
     Indication: GASTROOESOPHAGEAL REFLUX DISEASE
     Dates: start: 20050512, end: 20160226
  6. VITAMIN C [Concomitant]
     Active Substance: ASCORBIC ACID
  7. GREEK YOGURT [Concomitant]

REACTIONS (12)
  - Muscle spasms [None]
  - Activities of daily living impaired [None]
  - Pain [None]
  - Memory impairment [None]
  - Nightmare [None]
  - Paraesthesia [None]
  - Feeling abnormal [None]
  - Myocardial infarction [None]
  - Fatigue [None]
  - Restless legs syndrome [None]
  - Palpitations [None]
  - Vision blurred [None]
